FAERS Safety Report 8011234-1 (Version None)
Quarter: 2011Q4

REPORT INFORMATION
  Report Type: 
  Country: None (occurrence: None)
  Receive Date: 20111227
  Receipt Date: 20111227
  Transmission Date: 20120403
  Serious: Yes (Other)
  Sender: FDA-Public Use
  Company Number: None

PATIENT
  Age: 41 Year
  Sex: Male
  Weight: 124.73 kg

DRUGS (2)
  1. CYMBALTA [Suspect]
     Indication: MOOD SWINGS
     Dosage: 60MG
     Route: 048
     Dates: start: 20080202, end: 20111223
  2. CYMBALTA [Suspect]
     Indication: DEPRESSION
     Dosage: 60MG
     Route: 048
     Dates: start: 20080202, end: 20111223

REACTIONS (3)
  - ABNORMAL DREAMS [None]
  - SUICIDAL IDEATION [None]
  - NIGHTMARE [None]
